FAERS Safety Report 25113662 (Version 1)
Quarter: 2025Q1

REPORT INFORMATION
  Report Type: Spontaneous
  Country: US (occurrence: None)
  Receive Date: 20250322
  Receipt Date: 20250322
  Transmission Date: 20250408
  Serious: Yes (Other)
  Sender: FDA-CTU
  Company Number: None

PATIENT
  Age: 76 Year
  Sex: Female
  Weight: 58.95 kg

DRUGS (5)
  1. TERBINAFINE [Suspect]
     Active Substance: TERBINAFINE
     Indication: Onychomycosis
     Dosage: 90 TABLETS DAILY ORAL
     Route: 048
     Dates: start: 20250115, end: 20250228
  2. SIMVASTATIN [Concomitant]
     Active Substance: SIMVASTATIN
  3. PROLIA [Concomitant]
     Active Substance: DENOSUMAB
  4. COLLAGEN [Concomitant]
     Active Substance: COLLAGEN
  5. VITAMIN D [Concomitant]
     Active Substance: VITAMIN D NOS

REACTIONS (1)
  - Ageusia [None]

NARRATIVE: CASE EVENT DATE: 20250222
